FAERS Safety Report 25898267 (Version 5)
Quarter: 2025Q4

REPORT INFORMATION
  Report Type: Report from Study
  Country: EU (occurrence: EU)
  Receive Date: 20251008
  Receipt Date: 20251207
  Transmission Date: 20260117
  Serious: Yes (Hospitalization)
  Sender: ABBVIE
  Company Number: EU-ABBVIE-6491744

PATIENT
  Age: 75 Year
  Sex: Female

DRUGS (2)
  1. FOSCARBIDOPA\FOSLEVODOPA [Suspect]
     Active Substance: FOSCARBIDOPA\FOSLEVODOPA
     Indication: Parkinson^s disease
     Dosage: (SD: 0.60 ML), CRN: 0.17 ML/H, CR: 0.35 ML/H, CRH: 0.37 ML/H, ED: 0.15 ML?LAST ADMIN DATE: 2025
     Route: 058
     Dates: start: 20250721
  2. FOSCARBIDOPA\FOSLEVODOPA [Suspect]
     Active Substance: FOSCARBIDOPA\FOSLEVODOPA
     Dosage: (SD: 0.60 ML); CRN: 0.20 ML/H; CR: 0.39 ML/H; CRH: 0.41 ML/H; ED: 0.15 ML?FIRST ADMIN DATE: 2025
     Route: 058

REACTIONS (10)
  - Pneumonia [Recovered/Resolved]
  - Dyskinesia [Recovering/Resolving]
  - Infusion site induration [Not Recovered/Not Resolved]
  - Inflammatory marker increased [Recovered/Resolved]
  - Hypokinesia [Recovering/Resolving]
  - Sensory disturbance [Unknown]
  - On and off phenomenon [Not Recovered/Not Resolved]
  - Myocardial infarction [Recovered/Resolved]
  - Hypophagia [Not Recovered/Not Resolved]
  - Fluid intake reduced [Not Recovered/Not Resolved]

NARRATIVE: CASE EVENT DATE: 20250101
